FAERS Safety Report 7149081-5 (Version None)
Quarter: 2010Q4

REPORT INFORMATION
  Report Type: 
  Country: None (occurrence: None)
  Receive Date: 20101209
  Receipt Date: 20101203
  Transmission Date: 20110411
  Serious: Yes (Hospitalization)
  Sender: FDA-Public Use
  Company Number: NL-BRISTOL-MYERS SQUIBB COMPANY-15423585

PATIENT
  Age: 33 Year
  Sex: Male
  Weight: 90 kg

DRUGS (3)
  1. ABILIFY [Suspect]
     Indication: SCHIZOPHRENIA
     Dates: start: 20101007, end: 20101010
  2. FLUVOXAMINE [Concomitant]
  3. CLOZAPINE [Concomitant]

REACTIONS (1)
  - PSYCHOTIC DISORDER [None]
